FAERS Safety Report 19135178 (Version 3)
Quarter: 2021Q2

REPORT INFORMATION
  Report Type: Spontaneous
  Country: JP (occurrence: JP)
  Receive Date: 20210414
  Receipt Date: 20210604
  Transmission Date: 20210717
  Serious: Yes (Hospitalization)
  Sender: FDA-Public Use
  Company Number: JP-EISAI MEDICAL RESEARCH-EC-2021-090956

PATIENT
  Age: 22 Year
  Sex: Female

DRUGS (2)
  1. FYCOMPA [Suspect]
     Active Substance: PERAMPANEL
     Indication: EPILEPSY
     Route: 048
     Dates: end: 20210331
  2. FYCOMPA [Suspect]
     Active Substance: PERAMPANEL
     Dosage: 10 TO 15 ? 4 MG TABLETS
     Route: 048
     Dates: start: 20210401, end: 20210401

REACTIONS (3)
  - Altered state of consciousness [Recovering/Resolving]
  - Confusional state [Recovered/Resolved]
  - Intentional overdose [Recovered/Resolved]

NARRATIVE: CASE EVENT DATE: 20210401
